FAERS Safety Report 23025829 (Version 3)
Quarter: 2023Q4

REPORT INFORMATION
  Report Type: Spontaneous
  Country: US (occurrence: US)
  Receive Date: 20231004
  Receipt Date: 20231201
  Transmission Date: 20240109
  Serious: No
  Sender: FDA-Public Use
  Company Number: US-ALEMBIC PHARMACUETICALS LIMITED-2023SCAL000743

PATIENT

DRUGS (2)
  1. BIMATOPROST [Suspect]
     Active Substance: BIMATOPROST
     Indication: Madarosis
     Dosage: 1 DROP ON EACH EYELASH, DAILY AT NIGHT
     Route: 061
     Dates: start: 20230821, end: 20230916
  2. LISINOPRIL [Concomitant]
     Active Substance: LISINOPRIL
     Indication: Blood pressure increased
     Dosage: 20MG HALF A TABLET ONCE A DAY
     Route: 048

REACTIONS (6)
  - Feeling abnormal [Unknown]
  - Arcus lipoides [Recovered/Resolved]
  - Product colour issue [Unknown]
  - Product quality issue [Unknown]
  - Dry eye [Recovered/Resolved]
  - Eye pain [Recovered/Resolved]

NARRATIVE: CASE EVENT DATE: 20230821
